FAERS Safety Report 12117418 (Version 9)
Quarter: 2018Q3

REPORT INFORMATION
  Report Type: Spontaneous
  Country: US (occurrence: US)
  Receive Date: 20160225
  Receipt Date: 20180704
  Transmission Date: 20181010
  Serious: Yes (Other)
  Sender: FDA-Public Use
  Company Number: US-ASTRAZENECA-2016SE18098

PATIENT
  Age: 723 Month
  Sex: Female
  Weight: 85.3 kg

DRUGS (34)
  1. PRAVASTATIN. [Concomitant]
     Active Substance: PRAVASTATIN
     Indication: BLOOD CHOLESTEROL ABNORMAL
     Route: 048
  2. XANAX [Concomitant]
     Active Substance: ALPRAZOLAM
     Indication: ANXIETY
     Dosage: 0.5 MG, TWO TIMES A DAY?THREE TIMES A DAY
     Route: 048
  3. CARAFATE [Concomitant]
     Active Substance: SUCRALFATE
     Indication: ULCER
     Route: 048
  4. PROZAC [Concomitant]
     Active Substance: FLUOXETINE HYDROCHLORIDE
     Route: 048
  5. FISH OIL [Concomitant]
     Active Substance: FISH OIL
     Indication: BLOOD CHOLESTEROL ABNORMAL
     Dosage: 1000 MG, THREE TIMES A DAY, BUT ONLY TAKES IT ONCE A DAY DUE TO FISH TASTE
     Route: 048
  6. VIT D 3 [Concomitant]
     Route: 048
     Dates: start: 201602
  7. TUDORZA PRESSAIR [Suspect]
     Active Substance: ACLIDINIUM BROMIDE
     Indication: BRONCHITIS
     Dosage: 400 MCG, ONE INHALATION, TWICE A DAY
     Route: 055
     Dates: start: 20180528
  8. SYMBICORT [Suspect]
     Active Substance: BUDESONIDE\FORMOTEROL FUMARATE DIHYDRATE
     Indication: BRONCHITIS
     Dosage: 320 MCG, TWO TIMES A DAY
     Route: 055
  9. NASONEX [Concomitant]
     Active Substance: MOMETASONE FUROATE
     Dosage: 2.0DF UNKNOWN
     Route: 045
     Dates: start: 2013
  10. TRICOR [Concomitant]
     Active Substance: FENOFIBRATE
     Indication: BLOOD CHOLESTEROL ABNORMAL
     Dosage: AT NIGHT
     Route: 048
  11. TUDORZA PRESSAIR [Suspect]
     Active Substance: ACLIDINIUM BROMIDE
     Indication: DYSPNOEA
     Dosage: 400 MCG, ONE INHALATION, TWICE A DAY
     Route: 055
  12. SYMBICORT [Suspect]
     Active Substance: BUDESONIDE\FORMOTEROL FUMARATE DIHYDRATE
     Indication: BRONCHITIS
     Dosage: 160/4.5 MCG , TWO INHALATIONS, TWICE DAILY
     Route: 055
  13. SYMBICORT [Suspect]
     Active Substance: BUDESONIDE\FORMOTEROL FUMARATE DIHYDRATE
     Indication: ASTHMA
     Dosage: 160/4.5 MCG , TWO INHALATIONS, TWICE DAILY
     Route: 055
  14. POTASSIUM [Concomitant]
     Active Substance: POTASSIUM
     Route: 048
     Dates: start: 2015
  15. METFORMIN [Concomitant]
     Active Substance: METFORMIN HYDROCHLORIDE
     Indication: BLOOD GLUCOSE ABNORMAL
     Dosage: DAILY
  16. SYMBICORT [Suspect]
     Active Substance: BUDESONIDE\FORMOTEROL FUMARATE DIHYDRATE
     Indication: CHRONIC OBSTRUCTIVE PULMONARY DISEASE
     Dosage: 320 MCG, TWO TIMES A DAY
     Route: 055
  17. HYDROCODONE [Concomitant]
     Active Substance: HYDROCODONE
     Indication: PAIN
     Dosage: 10?3?25, ONE EVERY SIX HOURS AS REQUIRED
     Route: 048
     Dates: end: 2015
  18. HYDROCODONE [Concomitant]
     Active Substance: HYDROCODONE
     Indication: PAIN
     Route: 048
     Dates: start: 2015
  19. ROBAXIN [Concomitant]
     Active Substance: METHOCARBAMOL
     Indication: MUSCLE SPASMS
     Dosage: 750 MG, THREE TIMES A DAY AS REQUIRED
     Route: 048
  20. LASIX [Concomitant]
     Active Substance: FUROSEMIDE
     Route: 048
  21. ALBUTEROL. [Concomitant]
     Active Substance: ALBUTEROL
     Dosage: EVERY FOUR HOURS AS REQUIRED
     Route: 055
  22. TUDORZA PRESSAIR [Suspect]
     Active Substance: ACLIDINIUM BROMIDE
     Indication: BRONCHITIS
     Route: 055
  23. SYMBICORT [Suspect]
     Active Substance: BUDESONIDE\FORMOTEROL FUMARATE DIHYDRATE
     Indication: ASTHMA
     Dosage: 320 MCG, TWO TIMES A DAY
     Route: 055
  24. LOSARTAN. [Concomitant]
     Active Substance: LOSARTAN
     Indication: BLOOD PRESSURE ABNORMAL
     Route: 048
     Dates: start: 201602
  25. PROVENTIL [Concomitant]
     Active Substance: ALBUTEROL
     Indication: ASTHMA
     Dosage: 1 PUFF EVERY FOUR?SIX HOUR
     Route: 055
  26. PROVENTIL [Concomitant]
     Active Substance: ALBUTEROL
     Indication: BRONCHITIS
     Dosage: 1 PUFF EVERY FOUR?SIX HOUR
     Route: 055
  27. TUDORZA PRESSAIR [Suspect]
     Active Substance: ACLIDINIUM BROMIDE
     Indication: BRONCHITIS
     Dosage: 400 MCG, ONE INHALATION, TWICE A DAY
     Route: 055
  28. SYMBICORT [Suspect]
     Active Substance: BUDESONIDE\FORMOTEROL FUMARATE DIHYDRATE
     Indication: CHRONIC OBSTRUCTIVE PULMONARY DISEASE
     Dosage: 160/4.5 MCG , TWO INHALATIONS, TWICE DAILY
     Route: 055
  29. SINGULAIR [Concomitant]
     Active Substance: MONTELUKAST SODIUM
     Dosage: 10.0MG UNKNOWN
  30. NEURONTIN [Concomitant]
     Active Substance: GABAPENTIN
     Indication: FIBROMYALGIA
     Route: 048
  31. TUDORZA PRESSAIR [Suspect]
     Active Substance: ACLIDINIUM BROMIDE
     Indication: DYSPNOEA
     Route: 055
  32. TUDORZA PRESSAIR [Suspect]
     Active Substance: ACLIDINIUM BROMIDE
     Indication: DYSPNOEA
     Dosage: 400 MCG, ONE INHALATION, TWICE A DAY
     Route: 055
     Dates: start: 20180528
  33. RESTASIS [Concomitant]
     Active Substance: CYCLOSPORINE
     Indication: DRY EYE
     Dosage: 1.0GTT UNKNOWN
     Route: 047
     Dates: start: 2015
  34. RESTASIS [Concomitant]
     Active Substance: CYCLOSPORINE
     Indication: EYE ALLERGY
     Dosage: 1.0GTT UNKNOWN
     Route: 047
     Dates: start: 2015

REACTIONS (21)
  - Sinus disorder [Unknown]
  - Visual acuity reduced [Unknown]
  - Product use in unapproved indication [Unknown]
  - Eye pruritus [Unknown]
  - Vision blurred [Unknown]
  - Intentional product misuse [Unknown]
  - Lower limb fracture [Unknown]
  - Fatigue [Unknown]
  - Hypersensitivity [Unknown]
  - Sinusitis [Recovered/Resolved]
  - Malaise [Unknown]
  - Eye irritation [Unknown]
  - Pulmonary congestion [Unknown]
  - Off label use [Unknown]
  - Foot fracture [Unknown]
  - Dyspnoea [Unknown]
  - Dry eye [Unknown]
  - Pharyngitis streptococcal [Recovered/Resolved]
  - Device malfunction [Unknown]
  - Bone density decreased [Unknown]
  - Drug dose omission [Unknown]

NARRATIVE: CASE EVENT DATE: 201507
